FAERS Safety Report 21207428 (Version 1)
Quarter: 2022Q3

REPORT INFORMATION
  Report Type: Spontaneous
  Country: US (occurrence: US)
  Receive Date: 20220812
  Receipt Date: 20220812
  Transmission Date: 20221026
  Serious: Yes (Hospitalization)
  Sender: FDA-Public Use
  Company Number: US-PFIZER INC-202201051268

PATIENT
  Age: 59 Year
  Sex: Male
  Weight: 69.85 kg

DRUGS (2)
  1. EFFEXOR XR [Suspect]
     Active Substance: VENLAFAXINE HYDROCHLORIDE
     Indication: Depression
     Dosage: 150 MG, 2X/DAY(150MG TAKEN TWICE A DAY)
  2. VENLAFAXINE HCL [Suspect]
     Active Substance: VENLAFAXINE HYDROCHLORIDE
     Indication: Depression
     Dosage: 150 MG, 2X/DAY(150MG TWICE A DAY)

REACTIONS (4)
  - Haemoptysis [Unknown]
  - Haemorrhage [Unknown]
  - Illness [Unknown]
  - Tracheostomy [Unknown]
